FAERS Safety Report 4782973-0 (Version None)
Quarter: 2005Q3

REPORT INFORMATION
  Report Type: 
  Country: None (occurrence: None)
  Receive Date: 20050928
  Receipt Date: 20050928
  Transmission Date: 20060218
  Serious: Yes (Life-Threatening)
  Sender: FDA-Public Use
  Company Number: None

PATIENT
  Sex: Female
  Weight: 41.7309 kg

DRUGS (6)
  1. LORAZEPAM [Suspect]
     Indication: AGITATION
     Dosage: 0.5MG ONCE IV BOLUS
     Route: 040
     Dates: start: 20040910, end: 20050910
  2. PANTOPRAZOLE [Concomitant]
  3. METOPROLOL [Concomitant]
  4. ACETAMINOPHEN [Concomitant]
  5. POTASSIUM CHLORIDE [Concomitant]
  6. HEPARIN [Concomitant]

REACTIONS (7)
  - CARDIO-RESPIRATORY ARREST [None]
  - DYSPNOEA [None]
  - HYPERSENSITIVITY [None]
  - OXYGEN SATURATION DECREASED [None]
  - PROCEDURAL COMPLICATION [None]
  - SOMNOLENCE [None]
  - SWOLLEN TONGUE [None]
